FAERS Safety Report 19716458 (Version 1)
Quarter: 2021Q3

REPORT INFORMATION
  Report Type: Spontaneous
  Country: DE (occurrence: DE)
  Receive Date: 20210818
  Receipt Date: 20210818
  Transmission Date: 20211014
  Serious: Yes (Hospitalization)
  Sender: FDA-Public Use
  Company Number: DE-TEVA-2021-DE-1941934

PATIENT
  Age: 86 Year
  Sex: Female
  Weight: 60 kg

DRUGS (13)
  1. ISOPTIN 80MG [Concomitant]
     Dosage: 160 MILLIGRAM DAILY; 80 MG, 1?0?1?0
     Route: 048
  2. DORZOLAMID [Concomitant]
     Dosage: 2 GTT DAILY; 20 MG/ML, 1?0?1?0, DROPS
     Route: 031
  3. ENALAPRIL [Concomitant]
     Active Substance: ENALAPRIL
     Dosage: 10 MILLIGRAM DAILY; 1?0?0?0
     Route: 048
  4. DRONEDARON [Suspect]
     Active Substance: DRONEDARONE
     Dosage: 800 MILLIGRAM DAILY; 400 MG, 1?0?1?0
     Route: 048
  5. PANTOPRAZOL [Concomitant]
     Active Substance: PANTOPRAZOLE SODIUM
     Dosage: 40 MILLIGRAM DAILY;  1?0?0?0
     Route: 048
  6. METAMIZOL [Concomitant]
     Active Substance: METAMIZOLE SODIUM
     Dosage: 500 MILLIGRAM DAILY;  0?1?0?0
     Route: 048
  7. HCT?CT 25MG [Suspect]
     Active Substance: HYDROCHLOROTHIAZIDE
     Dosage: 25 MILLIGRAM DAILY; 1?0?0?0
     Route: 048
  8. INEGY 10MG/20MG [Concomitant]
     Dosage: 1 DOSAGE FORMS DAILY; 10|20 MG, 0?0?1?0
     Route: 048
  9. APIXABAN [Concomitant]
     Active Substance: APIXABAN
     Dosage: 10 MILLIGRAM DAILY; 5 MG, 1?0?1?0
     Route: 048
  10. LEVOTHYROXIN?NATRIUM [Concomitant]
     Active Substance: LEVOTHYROXINE SODIUM
     Dosage: 75 MICROGRAM DAILY;  1?0?0?0
     Route: 048
  11. DUAKLIR GENUAIR 340MIKROGRAMM/12MIKROGRAMM [Concomitant]
     Dosage: 1 DOSAGE FORMS DAILY; 0?0?1?0
     Route: 055
  12. LATANOPROST AL COMP. 50MIKROGRAMM/ML + 5MG/ML [Concomitant]
     Dosage: 1 GTT DAILY; 5 MG/ML, 0?0?1?0, DROPS
     Route: 031
  13. DEXPANTHENOL. [Concomitant]
     Active Substance: DEXPANTHENOL
     Dosage: 1 GTT DAILY; 50 MG/ML, 1?0?0?0, DROPS
     Route: 031

REACTIONS (7)
  - Headache [Unknown]
  - Nausea [Unknown]
  - Abdominal pain [Unknown]
  - Visual impairment [Unknown]
  - Dyspepsia [Unknown]
  - Vomiting [Unknown]
  - Dizziness [Unknown]
